FAERS Safety Report 7763985-1 (Version None)
Quarter: 2011Q3

REPORT INFORMATION
  Report Type: 
  Country: None (occurrence: None)
  Receive Date: 20110916
  Receipt Date: 20110909
  Transmission Date: 20111222
  Serious: Yes (Death, Hospitalization)
  Sender: FDA-Public Use
  Company Number: 2011MA008017

PATIENT
  Age: 91 Year
  Sex: Female

DRUGS (3)
  1. NAPROXEN [Suspect]
     Indication: CARDIOVASCULAR EVENT PROPHYLAXIS
     Dosage: 500 MG;BID;PO
     Route: 048
  2. LEVOTHYROXINE SODIUM [Concomitant]
  3. ASPIRIN [Suspect]
     Dosage: 75 MG;

REACTIONS (2)
  - GASTROINTESTINAL ULCER [None]
  - INFECTIOUS PERITONITIS [None]
